FAERS Safety Report 22068311 (Version 1)
Quarter: 2023Q1

REPORT INFORMATION
  Report Type: Spontaneous
  Country: CA (occurrence: None)
  Receive Date: 20230307
  Receipt Date: 20230307
  Transmission Date: 20230417
  Serious: Yes (Other)
  Sender: FDA-Public Use
  Company Number: CA-PFIZER INC-202300089773

PATIENT
  Age: 30 Year
  Sex: Male
  Weight: 107.9 kg

DRUGS (2)
  1. METHOTREXATE [Suspect]
     Active Substance: METHOTREXATE
     Indication: Product used for unknown indication
     Dosage: 1 DF, DOSAGE NOT AVAILABLE, UNKNOWN IF ONGOING
     Route: 065
  2. INFLECTRA [Concomitant]
     Active Substance: INFLIXIMAB-DYYB
     Indication: Crohn^s disease
     Dosage: 1 DF, DOSAGE AND FREQUENCY NOT PROVIDED
     Route: 042
     Dates: start: 20230123

REACTIONS (9)
  - Haematochezia [Unknown]
  - Drug ineffective [Unknown]
  - Intestinal dilatation [Unknown]
  - Gastrointestinal wall abnormal [Recovering/Resolving]
  - Anal erythema [Unknown]
  - Aphthous ulcer [Not Recovered/Not Resolved]
  - Oedema [Not Recovered/Not Resolved]
  - Diarrhoea [Unknown]
  - Abdominal pain [Unknown]
